FAERS Safety Report 4471198-4 (Version None)
Quarter: 2004Q4

REPORT INFORMATION
  Report Type: 
  Country: None (occurrence: None)
  Receive Date: 20041006
  Receipt Date: 20040923
  Transmission Date: 20050328
  Serious: Yes (Hospitalization)
  Sender: FDA-Public Use
  Company Number: 2004070461

PATIENT
  Age: 63 Year
  Sex: Male
  Weight: 86 kg

DRUGS (5)
  1. SORTIS (ATORVASTATIN) [Suspect]
     Indication: HYPERLIPIDAEMIA
     Dosage: 10 MG (10 MG, 1 IN 1 D), ORAL
     Route: 048
     Dates: start: 19980101, end: 20040427
  2. CLOPIDOGREL BISULFATE [Suspect]
     Indication: THROMBOSIS PROPHYLAXIS
     Dosage: 75 MG (75 MG, 1 IN 1 D), ORAL
     Route: 048
     Dates: start: 20030301, end: 20040427
  3. ASPIRIN [Suspect]
     Indication: ILL-DEFINED DISORDER
     Dosage: (100 MG), ORAL
     Route: 048
     Dates: start: 19930101, end: 20030701
  4. ALLOPURINOL [Concomitant]
  5. NEBIVOLOL HYDROCHLORIDE             (NEBVIVOLOL HYDROCHLORIDE) [Concomitant]

REACTIONS (8)
  - DRUG INTERACTION [None]
  - DUODENITIS [None]
  - GASTROINTESTINAL HAEMORRHAGE [None]
  - HAEMATEMESIS [None]
  - HELICOBACTER GASTRITIS [None]
  - MECHANICAL ILEUS [None]
  - PYREXIA [None]
  - REFLUX OESOPHAGITIS [None]
